FAERS Safety Report 20547177 (Version 2)
Quarter: 2023Q2

REPORT INFORMATION
  Report Type: Report from Study
  Country: JP (occurrence: JP)
  Receive Date: 20220303
  Receipt Date: 20230417
  Transmission Date: 20230722
  Serious: Yes (Death)
  Sender: FDA-Public Use
  Company Number: JP-PFIZER INC-202200350348

PATIENT
  Age: 44 Year
  Sex: Male

DRUGS (1)
  1. SUNITINIB MALATE [Suspect]
     Active Substance: SUNITINIB MALATE
     Indication: Gastrointestinal stromal tumour
     Dosage: IN SIX-WEEK CYCLES WITH FOUR WEEKS ON AND TWO WEEKS OFF-TREATMENT
     Route: 048

REACTIONS (2)
  - Cerebral infarction [Fatal]
  - Hypertension [Fatal]
